FAERS Safety Report 13513069 (Version 1)
Quarter: 2017Q2

REPORT INFORMATION
  Report Type: Spontaneous
  Country: OM (occurrence: OM)
  Receive Date: 20170504
  Receipt Date: 20170504
  Transmission Date: 20170830
  Serious: Yes (Other)
  Sender: FDA-Public Use
  Company Number: OM-MACLEODS PHARMACEUTICALS US LTD-MAC2015002266

PATIENT

DRUGS (3)
  1. AMLODIPINE BESYLATE. [Suspect]
     Active Substance: AMLODIPINE BESYLATE
     Indication: HYPERTENSION
     Dosage: 2.5 MG BID (0.3 MG/KG/DAY)
     Route: 065
  2. ATENOLOL. [Concomitant]
     Active Substance: ATENOLOL
     Indication: HYPERTENSION
     Dosage: 1.6 MG/KG/DAY
     Route: 065
  3. FUROSEMIDE. [Concomitant]
     Active Substance: FUROSEMIDE
     Indication: HYPERTENSION
     Dosage: 2.6 MG/KG/DAY
     Route: 065

REACTIONS (3)
  - Weight increased [Recovered/Resolved]
  - Drug administered to patient of inappropriate age [Recovered/Resolved]
  - Generalised oedema [Recovered/Resolved]
